FAERS Safety Report 4990882-7 (Version None)
Quarter: 2006Q2

REPORT INFORMATION
  Report Type: 
  Country: None (occurrence: None)
  Receive Date: 20060427
  Receipt Date: 20060417
  Transmission Date: 20061013
  Serious: Yes (Hospitalization)
  Sender: FDA-Public Use
  Company Number: 2006030054(1)

PATIENT
  Age: 73 Year
  Sex: Female

DRUGS (4)
  1. DORAL [Suspect]
     Indication: INSOMNIA
     Dosage: 15 MG (1 IN 1 D) ORAL
     Route: 048
     Dates: start: 20060125, end: 20060130
  2. PAXIL [Suspect]
     Indication: DEPRESSION
     Dates: end: 20060130
  3. LUVOX [Concomitant]
  4. LENDORM [Concomitant]

REACTIONS (10)
  - BLOOD ALKALINE PHOSPHATASE INCREASED [None]
  - DELIRIUM [None]
  - DEPRESSED LEVEL OF CONSCIOUSNESS [None]
  - DISORIENTATION [None]
  - DRUG LEVEL INCREASED [None]
  - ELECTROENCEPHALOGRAM ABNORMAL [None]
  - EUPHORIC MOOD [None]
  - MASTITIS [None]
  - PLEURAL EFFUSION [None]
  - SOMNOLENCE [None]
